FAERS Safety Report 5361328-4 (Version None)
Quarter: 2007Q2

REPORT INFORMATION
  Report Type: 
  Country: None (occurrence: None)
  Receive Date: 20070612
  Receipt Date: 20070604
  Transmission Date: 20071010
  Serious: Yes (Life-Threatening)
  Sender: FDA-Public Use
  Company Number: GXKR2007GB04846

PATIENT
  Age: 70 Year
  Sex: Male
  Weight: 99 kg

DRUGS (7)
  1. WARFARIN SODIUM [Suspect]
     Indication: ATRIAL FIBRILLATION
     Dosage: 1 MG,
     Dates: start: 20060822
  2. WARFARIN SODIUM [Suspect]
     Indication: ATRIAL FIBRILLATION
     Dosage: 1 MG,
     Dates: start: 20061121
  3. CO-PHENOTROPE(ATROPINE SULFATE, DIPHENOXYLATE HYDROCHLORIDE) 25MG [Suspect]
     Indication: DIARRHOEA
     Dosage: 1 MG
  4. DIGOXIN [Concomitant]
  5. FLUTICASONE PROPIONATE [Concomitant]
  6. KONAKION MM (PHYTOMENADIONE) [Concomitant]
  7. SIMVASTATIN [Concomitant]

REACTIONS (3)
  - DIARRHOEA [None]
  - DRUG INTERACTION [None]
  - INTERNATIONAL NORMALISED RATIO INCREASED [None]
